FAERS Safety Report 25494293 (Version 1)
Quarter: 2025Q2

REPORT INFORMATION
  Report Type: Report from Study
  Country: AE (occurrence: AE)
  Receive Date: 20250630
  Receipt Date: 20250630
  Transmission Date: 20250717
  Serious: Yes (Hospitalization, Other)
  Sender: ROCHE
  Company Number: AE-ROCHE-10000322759

PATIENT
  Age: 47 Year
  Sex: Female

DRUGS (1)
  1. MABTHERA [Suspect]
     Active Substance: RITUXIMAB
     Indication: Product used for unknown indication
     Route: 065

REACTIONS (8)
  - Dyspnoea [Unknown]
  - Tracheostomy [Unknown]
  - Lymphatic system neoplasm [Unknown]
  - Myelodysplastic syndrome with single lineage dysplasia [Unknown]
  - Headache [Unknown]
  - Diffuse large B-cell lymphoma [Unknown]
  - Atelectasis [Unknown]
  - Cough [Unknown]
